FAERS Safety Report 7111357-5 (Version None)
Quarter: 2010Q4

REPORT INFORMATION
  Report Type: 
  Country: None (occurrence: None)
  Receive Date: 20101118
  Receipt Date: 20101111
  Transmission Date: 20110411
  Serious: Yes (Death, Other)
  Sender: FDA-Public Use
  Company Number: PHHY2009US66765

PATIENT
  Sex: Male

DRUGS (2)
  1. EXJADE [Suspect]
     Dosage: 250 MG, UNK
     Route: 048
  2. EXJADE [Suspect]
     Dosage: 500 MG, UNK
     Route: 048

REACTIONS (2)
  - DEATH [None]
  - RENAL FAILURE [None]
